FAERS Safety Report 25522406 (Version 1)
Quarter: 2025Q3

REPORT INFORMATION
  Report Type: Spontaneous
  Country: JP (occurrence: JP)
  Receive Date: 20250707
  Receipt Date: 20250707
  Transmission Date: 20251020
  Serious: Yes (Death, Other)
  Sender: BOEHRINGER INGELHEIM
  Company Number: JP-NBI-2025-BI-081003

PATIENT

DRUGS (3)
  1. OFEV [Suspect]
     Active Substance: NINTEDANIB
     Indication: Idiopathic pulmonary fibrosis
  2. OFEV [Suspect]
     Active Substance: NINTEDANIB
     Indication: Systemic sclerosis pulmonary
  3. OFEV [Suspect]
     Active Substance: NINTEDANIB
     Indication: Interstitial lung disease

REACTIONS (11)
  - Chronic respiratory failure [Fatal]
  - Pneumonia [Fatal]
  - Lung neoplasm malignant [Fatal]
  - Pulmonary hypertension [Fatal]
  - Interstitial lung disease [Recovering/Resolving]
  - Pneumothorax [Unknown]
  - Diarrhoea [Unknown]
  - Liver disorder [Unknown]
  - Decreased appetite [Unknown]
  - Haemorrhage [Unknown]
  - Thrombosis [Unknown]
